FAERS Safety Report 9940998 (Version 1)
Quarter: 2014Q1

REPORT INFORMATION
  Report Type: Spontaneous
  Country: US (occurrence: US)
  Receive Date: 20140303
  Receipt Date: 20140303
  Transmission Date: 20141002
  Serious: Yes (Other)
  Sender: FDA-Public Use
  Company Number: US-JNJFOC-20140215616

PATIENT
  Sex: Female

DRUGS (1)
  1. XARELTO [Suspect]
     Indication: THROMBOSIS
     Route: 048
     Dates: start: 201312, end: 201401

REACTIONS (4)
  - Cholecystectomy [Recovered/Resolved]
  - Nausea [Unknown]
  - Abnormal loss of weight [Unknown]
  - Malaise [Unknown]
